FAERS Safety Report 17917164 (Version 2)
Quarter: 2020Q3

REPORT INFORMATION
  Report Type: Report from Study
  Country: None (occurrence: US)
  Receive Date: 20200619
  Receipt Date: 20200927
  Transmission Date: 20201103
  Serious: Yes (Other)
  Sender: FDA-Public Use
  Company Number: US-ABBVIE-20K-163-3290581-00

PATIENT
  Age: 47 Year
  Sex: Female

DRUGS (4)
  1. HUMIRA [Suspect]
     Active Substance: ADALIMUMAB
     Indication: PSORIASIS
     Route: 058
     Dates: start: 20190813
  2. HUMIRA [Suspect]
     Active Substance: ADALIMUMAB
     Indication: PSORIATIC ARTHROPATHY
  3. HUMIRA [Suspect]
     Active Substance: ADALIMUMAB
     Indication: PSORIASIS
  4. STELARA [Suspect]
     Active Substance: USTEKINUMAB
     Indication: PRODUCT USED FOR UNKNOWN INDICATION
     Route: 065

REACTIONS (24)
  - Meniere^s disease [Not Recovered/Not Resolved]
  - Skin plaque [Unknown]
  - Headache [Unknown]
  - Psoriasis [Not Recovered/Not Resolved]
  - Skin discolouration [Not Recovered/Not Resolved]
  - Emotional distress [Unknown]
  - Emotional distress [Not Recovered/Not Resolved]
  - Sinusitis [Unknown]
  - Henoch-Schonlein purpura [Not Recovered/Not Resolved]
  - Helplessness [Not Recovered/Not Resolved]
  - Neuropathy peripheral [Not Recovered/Not Resolved]
  - Skin irritation [Not Recovered/Not Resolved]
  - General physical condition abnormal [Unknown]
  - Skin ulcer [Unknown]
  - Night sweats [Not Recovered/Not Resolved]
  - Fibromyalgia [Unknown]
  - Clostridium difficile infection [Unknown]
  - Nasopharyngitis [Recovered/Resolved]
  - Fatigue [Not Recovered/Not Resolved]
  - Impaired quality of life [Unknown]
  - Frustration tolerance decreased [Not Recovered/Not Resolved]
  - Self-consciousness [Unknown]
  - Rash pustular [Unknown]
  - Pain [Unknown]

NARRATIVE: CASE EVENT DATE: 2020
